FAERS Safety Report 20899627 (Version 2)
Quarter: 2022Q3

REPORT INFORMATION
  Report Type: Spontaneous
  Country: TR (occurrence: TR)
  Receive Date: 20220601
  Receipt Date: 20220916
  Transmission Date: 20221027
  Serious: Yes (Other)
  Sender: FDA-Public Use
  Company Number: TR-ALKEM LABORATORIES LIMITED-TR-ALKEM-2022-05205

PATIENT
  Age: 21 Year
  Sex: Male

DRUGS (2)
  1. ISONIAZID [Suspect]
     Active Substance: ISONIAZID
     Indication: Tuberculosis
     Dosage: 20 MILLIGRAM/KILOGRAM (1200MG)
     Route: 048
  2. RIFAMPIN [Suspect]
     Active Substance: RIFAMPIN
     Indication: Tuberculosis
     Dosage: UNK
     Route: 065

REACTIONS (13)
  - Suicide attempt [Unknown]
  - Generalised tonic-clonic seizure [Unknown]
  - Coma [Unknown]
  - Loss of consciousness [Unknown]
  - Overdose [Unknown]
  - Metabolic acidosis [Unknown]
  - Toxicity to various agents [Unknown]
  - Nausea [Unknown]
  - Vomiting [Unknown]
  - Aspartate aminotransferase increased [Unknown]
  - Alanine aminotransferase increased [Unknown]
  - Blood lactate dehydrogenase increased [Unknown]
  - Blood creatine phosphokinase increased [Unknown]
